FAERS Safety Report 6173936-1 (Version None)
Quarter: 2009Q2

REPORT INFORMATION
  Report Type: 
  Country: None (occurrence: None)
  Receive Date: 20090430
  Receipt Date: 20090424
  Transmission Date: 20091009
  Serious: Yes (Other)
  Sender: FDA-Public Use
  Company Number: BR-PFIZER INC-2009176190

PATIENT

DRUGS (1)
  1. FIBRASE [Suspect]
     Indication: WOUND
     Dosage: UNK
     Route: 061

REACTIONS (2)
  - DISABILITY [None]
  - INJURY [None]
